FAERS Safety Report 9469615 (Version 2)
Quarter: 2014Q2

REPORT INFORMATION
  Report Type: Spontaneous
  Country: US (occurrence: US)
  Receive Date: 20130822
  Receipt Date: 20140430
  Transmission Date: 20141212
  Serious: Yes (Death)
  Sender: FDA-Public Use
  Company Number: US-BRISTOL-MYERS SQUIBB COMPANY-19193119

PATIENT
  Age: 72 Year
  Sex: Female

DRUGS (6)
  1. BYETTA [Suspect]
     Indication: TYPE 2 DIABETES MELLITUS
     Dates: start: 2005, end: 2007
  2. JANUVIA [Suspect]
     Indication: TYPE 2 DIABETES MELLITUS
     Dates: start: 2007, end: 2010
  3. NEXIUM [Concomitant]
  4. SYNTHROID [Concomitant]
  5. COZAAR [Concomitant]
  6. LABETALOL [Concomitant]

REACTIONS (1)
  - Pancreatic carcinoma [Fatal]
